APPROVED DRUG PRODUCT: HALOPERIDOL
Active Ingredient: HALOPERIDOL LACTATE
Strength: EQ 2MG BASE/ML
Dosage Form/Route: CONCENTRATE;ORAL
Application: A071015 | Product #001
Applicant: TEVA PHARMACEUTICALS USA INC
Approved: Aug 25, 1987 | RLD: No | RS: No | Type: DISCN